FAERS Safety Report 8601757-6 (Version None)
Quarter: 2012Q3

REPORT INFORMATION
  Report Type: 
  Country: None (occurrence: None)
  Receive Date: 20120817
  Receipt Date: 20120424
  Transmission Date: 20120928
  Serious: Yes (Other)
  Sender: FDA-Public Use
  Company Number: US-BRISTOL-MYERS SQUIBB COMPANY-16453540

PATIENT
  Age: 77 Year
  Sex: Female

DRUGS (1)
  1. SPRYCEL [Suspect]
     Indication: CHRONIC MYELOID LEUKAEMIA
     Dosage: STOPPED SOMETIME IN FEB12
     Route: 048
     Dates: start: 20111018, end: 20120201

REACTIONS (1)
  - INTERSTITIAL LUNG DISEASE [None]
